FAERS Safety Report 9794569 (Version 3)
Quarter: 2014Q1

REPORT INFORMATION
  Report Type: Spontaneous
  Country: JP (occurrence: JP)
  Receive Date: 20140102
  Receipt Date: 20140122
  Transmission Date: 20141002
  Serious: Yes (Hospitalization)
  Sender: FDA-Public Use
  Company Number: JP-BAYER-2013-155929

PATIENT
  Age: 38 Year
  Sex: Female
  Weight: 62 kg

DRUGS (4)
  1. BAYASPIRIN [Suspect]
     Dosage: 100 MG, DAILY DOSE
     Route: 048
  2. CICLOSPORIN [Concomitant]
     Dosage: 125 MG, DAILY DOSE
     Route: 048
  3. METHYLPREDNISOLONE [Concomitant]
     Dosage: 8 MG, DAILY DOSE
     Route: 048
  4. AZATHIOPRINE [Concomitant]
     Dosage: 50 MG, DAILY DOSE
     Route: 048

REACTIONS (3)
  - Renal cell carcinoma [Recovered/Resolved]
  - Tumour rupture [Recovered/Resolved]
  - Perirenal haematoma [Recovering/Resolving]
